FAERS Safety Report 25250232 (Version 1)
Quarter: 2025Q2

REPORT INFORMATION
  Report Type: Spontaneous
  Country: US (occurrence: None)
  Receive Date: 20250428
  Receipt Date: 20250428
  Transmission Date: 20250717
  Serious: Yes (Other)
  Sender: FDA-CTU
  Company Number: None

PATIENT
  Age: 59 Year
  Sex: Female
  Weight: 70.2 kg

DRUGS (6)
  1. XIAFLEX [Suspect]
     Active Substance: COLLAGENASE CLOSTRIDIUM HISTOLYTICUM
  2. LOSARTAN [Concomitant]
     Active Substance: LOSARTAN
  3. XARELTO [Concomitant]
     Active Substance: RIVAROXABAN
  4. ADDERALL [Concomitant]
     Active Substance: AMPHETAMINE ASPARTATE\AMPHETAMINE SULFATE\DEXTROAMPHETAMINE SACCHARATE\DEXTROAMPHETAMINE SULFATE
  5. B12 otc [Concomitant]
  6. BIOTIN [Concomitant]
     Active Substance: BIOTIN

REACTIONS (11)
  - Dizziness [None]
  - Confusional state [None]
  - Irritability [None]
  - Axillary pain [None]
  - Arthralgia [None]
  - Pain in extremity [None]
  - Neck pain [None]
  - Arthralgia [None]
  - Muscular weakness [None]
  - Palpitations [None]
  - Feeling hot [None]

NARRATIVE: CASE EVENT DATE: 20250407
